FAERS Safety Report 7885949-X (Version None)
Quarter: 2011Q4

REPORT INFORMATION
  Report Type: 
  Country: None (occurrence: None)
  Receive Date: 20111102
  Receipt Date: 20110705
  Transmission Date: 20120403
  Serious: Yes (Hospitalization)
  Sender: FDA-Public Use
  Company Number: US-AMGEN-USASP2011033970

PATIENT
  Age: 71 Year
  Sex: Male

DRUGS (1)
  1. ENBREL [Suspect]
     Indication: RHEUMATOID ARTHRITIS
     Dosage: 50 MG, QWK
     Dates: start: 19991101

REACTIONS (9)
  - RHEUMATOID ARTHRITIS [None]
  - DRY SKIN [None]
  - DERMATITIS CONTACT [None]
  - PNEUMONIA VIRAL [None]
  - PRURITUS [None]
  - PNEUMONIA [None]
  - ONYCHOMYCOSIS [None]
  - UPPER RESPIRATORY TRACT INFECTION [None]
  - NASOPHARYNGITIS [None]
